FAERS Safety Report 12775710 (Version 1)
Quarter: 2016Q3

REPORT INFORMATION
  Report Type: Report from Study
  Country: IE (occurrence: IE)
  Receive Date: 20160923
  Receipt Date: 20160923
  Transmission Date: 20161109
  Serious: Yes (Other)
  Sender: FDA-Public Use
  Company Number: IE-AMGEN-IRLSL2016128414

PATIENT
  Age: 56 Year
  Sex: Female

DRUGS (5)
  1. EMEND [Concomitant]
     Active Substance: APREPITANT
     Dosage: 80 MG, QD
     Route: 050
  2. TRAMADOL. [Concomitant]
     Active Substance: TRAMADOL
     Dosage: 50 MG, QD
     Route: 050
  3. ASACOL [Concomitant]
     Active Substance: MESALAMINE
     Dosage: 500 MG, QD
     Route: 050
  4. DEXAMETHASONE. [Concomitant]
     Active Substance: DEXAMETHASONE
     Dosage: 2 MG, QD
     Route: 050
  5. NEULASTA [Suspect]
     Active Substance: PEGFILGRASTIM
     Indication: PRODUCT USED FOR UNKNOWN INDICATION
     Dosage: 6 MG, AFTER CHEMO 3
     Route: 058
     Dates: start: 20160831

REACTIONS (13)
  - Breast operation [Unknown]
  - Pain [Recovered/Resolved]
  - Tongue ulceration [Recovered/Resolved]
  - Breast pain [Unknown]
  - Nausea [Recovered/Resolved]
  - Nipple disorder [Unknown]
  - Stomatitis [Recovered/Resolved]
  - Tinnitus [Unknown]
  - Arthralgia [Recovered/Resolved]
  - Neck pain [Recovered/Resolved]
  - Dizziness [Recovered/Resolved]
  - Chest pain [Recovered/Resolved]
  - Gastrooesophageal reflux disease [Recovered/Resolved]

NARRATIVE: CASE EVENT DATE: 2016
